FAERS Safety Report 14462810 (Version 2)
Quarter: 2019Q1

REPORT INFORMATION
  Report Type: Other
  Country: US (occurrence: US)
  Receive Date: 20180130
  Receipt Date: 20190126
  Transmission Date: 20190417
  Serious: No
  Sender: FDA-Public Use
  Company Number: US-ACORDA-ACO_145493_2017

PATIENT
  Age: 39 Year
  Sex: Female

DRUGS (1)
  1. AMPYRA [Suspect]
     Active Substance: DALFAMPRIDINE
     Indication: GAIT DISTURBANCE
     Dosage: 10 MG, BID (Q 12 HRS)
     Route: 065
     Dates: start: 20171214

REACTIONS (3)
  - Dizziness [Recovered/Resolved]
  - Therapeutic response unexpected [Unknown]
  - Burning sensation [Unknown]

NARRATIVE: CASE EVENT DATE: 201712
